FAERS Safety Report 10603265 (Version 1)
Quarter: 2014Q4

REPORT INFORMATION
  Report Type: Spontaneous
  Country: BR (occurrence: BR)
  Receive Date: 20141124
  Receipt Date: 20141124
  Transmission Date: 20150529
  Serious: Yes (Other)
  Sender: FDA-Public Use
  Company Number: BR-CUBIST PHARMACEUTICALS, INC.-2014CBST001559

PATIENT

DRUGS (4)
  1. CUBICIN [Suspect]
     Active Substance: DAPTOMYCIN
     Indication: PROPHYLAXIS
     Dosage: UNK UNK, UNK
     Route: 065
  2. MEROPENEM. [Suspect]
     Active Substance: MEROPENEM
     Indication: PROPHYLAXIS
     Dosage: UNK UNK, UNK
     Route: 065
  3. MEROPENEM. [Suspect]
     Active Substance: MEROPENEM
     Indication: OFF LABEL USE
  4. CUBICIN [Suspect]
     Active Substance: DAPTOMYCIN
     Indication: OFF LABEL USE

REACTIONS (1)
  - Post procedural infection [Unknown]
